FAERS Safety Report 8624313-2 (Version None)
Quarter: 2012Q3

REPORT INFORMATION
  Report Type: 
  Country: None (occurrence: None)
  Receive Date: 20120827
  Receipt Date: 20120824
  Transmission Date: 20120928
  Serious: Yes (Death, Other)
  Sender: FDA-Public Use
  Company Number: NO-JNJFOC-20120600309

PATIENT
  Age: 49 Year
  Sex: Male

DRUGS (11)
  1. VINCRISTINE [Suspect]
     Indication: HODGKIN'S DISEASE
     Dosage: ON DAY 8
     Route: 042
  2. BLEOMYCIN SULFATE [Suspect]
     Indication: HODGKIN'S DISEASE
     Dosage: ON DAY 8
     Route: 042
  3. ETOPOSIDE [Suspect]
     Dosage: FOR THE ESCALATED CYCLES ON DAY 1 TO 3
     Route: 042
  4. ETOPOSIDE [Suspect]
     Dosage: FOR THE ESCALATED CYCLES ON DAY 1 TO 3
     Route: 042
  5. DOXORUBICIN HYDROCHLORIDE [Suspect]
     Indication: HODGKIN'S DISEASE
     Dosage: FOR ESCALATED CYCLES ON DAY 1
     Route: 042
  6. PREDNISOLONE [Suspect]
     Indication: HODGKIN'S DISEASE
     Dosage: ON DAY 1 TO 14 EVERY 21 DAY CYCLE TREATMENT FOR 6 CYCLES
     Route: 048
  7. DOXORUBICIN HYDROCHLORIDE [Suspect]
     Dosage: ON DAY 1,FOR STANDARD CYCLES
     Route: 042
  8. CYCLOPHOSPHAMIDE [Suspect]
     Indication: HODGKIN'S DISEASE
     Dosage: FOR ESCALATED CYCLES ON DAY 1
     Route: 042
  9. ETOPOSIDE [Suspect]
     Indication: HODGKIN'S DISEASE
     Dosage: FOR THE STANDARD CYCLES, DAY 1 TO 3
     Route: 042
  10. CYCLOPHOSPHAMIDE [Suspect]
     Dosage: FOR STANDARD CYCLES ON DAY 1
     Route: 042
  11. PROCARBAZINE HYDROCHLORIDE [Suspect]
     Indication: HODGKIN'S DISEASE
     Dosage: DAY 1 TO 7
     Route: 048

REACTIONS (6)
  - PNEUMOCYSTIS JIROVECI PNEUMONIA [None]
  - PYREXIA [None]
  - LUNG INFILTRATION [None]
  - INFECTION [None]
  - SEPTIC SHOCK [None]
  - BONE MARROW FAILURE [None]
